FAERS Safety Report 24599758 (Version 2)
Quarter: 2025Q2

REPORT INFORMATION
  Report Type: Report from Study
  Country: US (occurrence: US)
  Receive Date: 20241110
  Receipt Date: 20250527
  Transmission Date: 20250716
  Serious: No
  Sender: SANOFI AVENTIS
  Company Number: US-SA-2024SA314972

PATIENT
  Age: 10 Year
  Sex: Female
  Weight: 115 kg

DRUGS (1)
  1. DUPIXENT [Suspect]
     Active Substance: DUPILUMAB
     Indication: Dermatitis atopic
     Dosage: 200 MG, QOW
     Route: 058
     Dates: start: 202311

REACTIONS (3)
  - Dermatitis atopic [Recovering/Resolving]
  - Therapeutic response decreased [Unknown]
  - Off label use [Unknown]
